FAERS Safety Report 11783334 (Version 1)
Quarter: 2015Q4

REPORT INFORMATION
  Report Type: Spontaneous
  Country: AU (occurrence: AU)
  Receive Date: 20151127
  Receipt Date: 20151127
  Transmission Date: 20160305
  Serious: Yes (Death, Other)
  Sender: FDA-Public Use
  Company Number: PHHY2015AU153955

PATIENT
  Sex: Female

DRUGS (2)
  1. LETROZOLE. [Suspect]
     Active Substance: LETROZOLE
     Indication: LEIOMYOSARCOMA METASTATIC
     Route: 065
  2. LETROZOLE. [Suspect]
     Active Substance: LETROZOLE
     Indication: METASTASES TO LUNG

REACTIONS (5)
  - Product use issue [Unknown]
  - Malignant neoplasm progression [Unknown]
  - Death [Fatal]
  - Metastases to lung [Unknown]
  - Leiomyosarcoma metastatic [Unknown]
